FAERS Safety Report 6024578-X (Version None)
Quarter: 2008Q4

REPORT INFORMATION
  Report Type: 
  Country: None (occurrence: None)
  Receive Date: 20081231
  Receipt Date: 20081104
  Transmission Date: 20090506
  Serious: No
  Sender: FDA-Public Use
  Company Number: US-BRISTOL-MYERS SQUIBB COMPANY-14394852

PATIENT
  Age: 56 Year
  Sex: Female
  Weight: 113 kg

DRUGS (22)
  1. ORENCIA [Suspect]
     Indication: RHEUMATOID ARTHRITIS
     Dosage: NUMBER OF INF 3
     Route: 042
     Dates: start: 20081001
  2. BENADRYL [Concomitant]
     Indication: PREMEDICATION
     Dosage: 25 MG 1 TAB
  3. ACETAMINOPHEN [Concomitant]
     Indication: PREMEDICATION
     Dosage: FORM = TABS
  4. PROPOXYPHENE HYDROCHLORIDE [Concomitant]
  5. ACETAMINOPHEN [Concomitant]
  6. PREDNISONE [Concomitant]
  7. METHOTREXATE [Concomitant]
     Dosage: FORM = INJ
     Dates: start: 20071201
  8. FOLIC ACID [Concomitant]
  9. TYLENOL (CAPLET) [Concomitant]
  10. MAGNESIUM SULFATE [Concomitant]
  11. VALERIAN [Concomitant]
  12. COQ10 [Concomitant]
  13. FISH OIL [Concomitant]
  14. NAC DIAGNOSTIC REAGENT [Concomitant]
  15. MILK THISTLE [Concomitant]
  16. CHONDROITIN SULFATE + GLUCOSAMINE [Concomitant]
  17. JUICE PLUS [Concomitant]
  18. CALCIUM + VITAMIN D [Concomitant]
  19. ASCORBIC ACID [Concomitant]
  20. CRANBERRY [Concomitant]
     Dosage: ACTIFRUIT CRANBERRY SUPPLEMENT
  21. DARVOCET [Concomitant]
  22. AMBIEN [Concomitant]

REACTIONS (5)
  - HEADACHE [None]
  - NAUSEA [None]
  - PRURITUS [None]
  - THERAPEUTIC RESPONSE DECREASED [None]
  - VOMITING [None]
